FAERS Safety Report 13014250 (Version 1)
Quarter: 2016Q4

REPORT INFORMATION
  Report Type: Spontaneous
  Country: FR (occurrence: FR)
  Receive Date: 20161209
  Receipt Date: 20161209
  Transmission Date: 20170207
  Serious: Yes (Death, Hospitalization, Other)
  Sender: FDA-Public Use
  Company Number: FR-TEVA-718046ISR

PATIENT
  Sex: Male

DRUGS (6)
  1. RIBAVIRIN. [Suspect]
     Active Substance: RIBAVIRIN
     Indication: HIV INFECTION
     Dosage: 800MG/DAY
     Route: 065
  2. EMTRICITABINE [Concomitant]
     Active Substance: EMTRICITABINE
     Indication: HIV INFECTION
     Route: 065
  3. SOFOSBUVIR [Interacting]
     Active Substance: SOFOSBUVIR
     Indication: HIV INFECTION
     Dosage: 400 MG/DAY
     Route: 065
  4. TENOFOVIR DISOPROXIL FUMARATE. [Interacting]
     Active Substance: TENOFOVIR DISOPROXIL FUMARATE
     Indication: HIV INFECTION
     Dosage: INITIAL DOSE NOT STATED THEN REDUCED TO 245 MG DUE TO RENAL IMPAIRMENT
     Route: 065
  5. EFAVIRENZ [Concomitant]
     Active Substance: EFAVIRENZ
     Indication: HIV INFECTION
     Route: 065
  6. TENOFOVIR DISOPROXIL FUMARATE. [Interacting]
     Active Substance: TENOFOVIR DISOPROXIL FUMARATE
     Indication: HIV INFECTION
     Route: 065

REACTIONS (7)
  - Gastrointestinal haemorrhage [Fatal]
  - Chronic hepatic failure [Fatal]
  - Venous injury [Unknown]
  - Hepatic encephalopathy [Unknown]
  - Renal failure [Unknown]
  - Renal impairment [Unknown]
  - Drug interaction [Unknown]
